FAERS Safety Report 20657428 (Version 1)
Quarter: 2022Q1

REPORT INFORMATION
  Report Type: Spontaneous
  Country: JP (occurrence: JP)
  Receive Date: 20220331
  Receipt Date: 20220331
  Transmission Date: 20220424
  Serious: Yes (Hospitalization, Other)
  Sender: FDA-Public Use
  Company Number: JP-ADVANZ PHARMA-202203001843

PATIENT

DRUGS (14)
  1. ZONISAMIDE [Suspect]
     Active Substance: ZONISAMIDE
     Indication: Parkinson^s disease
     Dosage: 25 MG, QD, TRERIEF (ZONISAMIDE) ORODISPERSIBLE TABLET, AFTER BREAKFAST
     Route: 048
  2. CLONAZEPAM [Suspect]
     Active Substance: CLONAZEPAM
     Indication: Parkinson^s disease
     Dosage: 1 MG, QD  IN 2 DIVIDED DOSES (AFTER BREAKFAST AND SUPPER)
     Route: 048
  3. ESZOPICLONE [Suspect]
     Active Substance: ESZOPICLONE
     Indication: Product used for unknown indication
     Dosage: UNK
     Route: 048
  4. BENSERAZIDE HYDROCHLORIDE\LEVODOPA [Suspect]
     Active Substance: BENSERAZIDE HYDROCHLORIDE\LEVODOPA
     Indication: Parkinson^s disease
     Dosage: 750 MG, QD ( IN 7 DIVIDED DOSES (0.5 T ON WAKING, 2T BEFORE BREAKFAST, 1T AT 10, 2T BEFORE LUNCH, 0.
     Route: 048
  5. NEUPRO [Suspect]
     Active Substance: ROTIGOTINE
     Indication: Parkinson^s disease
     Dosage: 13.5 MG, QD
     Route: 062
  6. ROPINIROLE HYDROCHLORIDE [Suspect]
     Active Substance: ROPINIROLE HYDROCHLORIDE
     Indication: Parkinson^s disease
     Dosage: 6 MG, QD, CONTROLLED-RELEASE TABLET 6 MG AFTER BREAKFAST
     Route: 048
  7. AZILECT [Suspect]
     Active Substance: RASAGILINE MESYLATE
     Indication: Parkinson^s disease
     Dosage: 1 MG, QD, AFTER BREAKFAST
     Route: 048
  8. ENTACAPONE [Suspect]
     Active Substance: ENTACAPONE
     Indication: Parkinson^s disease
     Dosage: 300 MG, QD, IN 3 DIVIDED DOSES (ON WAKING, BEFORE BREAKFAST, AT 15)
     Route: 048
  9. MAGNESIUM OXIDE [Suspect]
     Active Substance: MAGNESIUM OXIDE
     Indication: Parkinson^s disease
     Dosage: 1500 MG, QD, DRUG UNSPECIFIED FORM; IN 3 DIVIDED DOSES (AFTER EACH MEAL)
     Route: 048
  10. AMITIZA [Suspect]
     Active Substance: LUBIPROSTONE
     Indication: Parkinson^s disease
     Dosage: 48 UG, QD,  (AFTER BREAKFAST AND SUPPER)
     Route: 048
  11. TOVIAZ [Suspect]
     Active Substance: FESOTERODINE FUMARATE
     Indication: Parkinson^s disease
     Dosage: 4 MG, QD, AFTER SUPPER
     Route: 048
  12. SAFINAMIDE MESYLATE [Suspect]
     Active Substance: SAFINAMIDE MESYLATE
     Indication: Product used for unknown indication
     Dosage: 50 MG, QD
     Route: 048
  13. SAFINAMIDE MESYLATE [Suspect]
     Active Substance: SAFINAMIDE MESYLATE
     Dosage: 100 MG, QD
     Route: 048
  14. L DOPA [Concomitant]
     Active Substance: LEVODOPA
     Indication: Parkinson^s disease

REACTIONS (7)
  - Fall [Unknown]
  - Contusion [Unknown]
  - Unresponsive to stimuli [Recovered/Resolved]
  - Depressed level of consciousness [Recovered/Resolved]
  - Suicide attempt [Recovered/Resolved]
  - Joint dislocation [Unknown]
  - Intentional overdose [Recovered/Resolved]
